FAERS Safety Report 10042876 (Version 1)
Quarter: 2014Q1

REPORT INFORMATION
  Report Type: Spontaneous
  Country: US (occurrence: US)
  Receive Date: 20140327
  Receipt Date: 20140327
  Transmission Date: 20141002
  Serious: Yes (Hospitalization)
  Sender: FDA-Public Use
  Company Number: US-AMGEN-USASP2014020976

PATIENT
  Age: 78 Year
  Sex: Female
  Weight: 70.75 kg

DRUGS (11)
  1. PROCRIT [Suspect]
     Indication: RENAL FAILURE
     Dosage: 10000 UNIT, 3 TIMES/WK
     Route: 058
     Dates: start: 2011
  2. INSULIN [Concomitant]
     Indication: DIABETES MELLITUS
     Dosage: 20 UNIT, QD
     Route: 058
  3. PLAVIX [Concomitant]
     Dosage: 75 MG, QD
     Route: 048
  4. LIPITOR [Concomitant]
     Indication: BLOOD CHOLESTEROL INCREASED
     Dosage: UNK
  5. CATAPRES                           /00171101/ [Concomitant]
     Indication: HYPERTENSION
     Dosage: 0.2 MG, BID
     Route: 048
  6. NORVASC [Concomitant]
     Dosage: 0.5 MG, QD
     Route: 048
  7. HYDRALAZINE [Concomitant]
     Dosage: 100 MG, TID
     Route: 048
  8. GABAPENTIN [Concomitant]
     Dosage: 400 MG, QD
     Route: 048
  9. CELEXA                             /00582602/ [Concomitant]
     Indication: DEPRESSION
     Dosage: 20 MG, QD
     Route: 048
  10. COREG [Concomitant]
     Indication: HYPERTENSION
     Dosage: 12.5 MG, BID
     Route: 048
  11. IRON [Concomitant]
     Indication: MINERAL SUPPLEMENTATION
     Dosage: UNK

REACTIONS (1)
  - Blood count abnormal [Recovered/Resolved]
